FAERS Safety Report 5850351-9 (Version None)
Quarter: 2008Q3

REPORT INFORMATION
  Report Type: 
  Country: None (occurrence: None)
  Receive Date: 20080819
  Receipt Date: 20080809
  Transmission Date: 20090109
  Serious: Yes (Hospitalization)
  Sender: FDA-Public Use
  Company Number: FR-ABBOTT-08P-056-0469645-00

PATIENT
  Sex: Male

DRUGS (4)
  1. LIPANTHYL [Suspect]
     Indication: MIXED HYPERLIPIDAEMIA
     Route: 048
     Dates: start: 20070527, end: 20080402
  2. LIPANTHYL [Suspect]
     Route: 048
     Dates: start: 20080527, end: 20080607
  3. SIMVASTATIN [Suspect]
     Indication: MIXED HYPERLIPIDAEMIA
     Route: 048
     Dates: start: 20080402, end: 20080607
  4. PERINDOPRIL ERBUMINE [Concomitant]
     Indication: HYPERTENSION
     Route: 048

REACTIONS (6)
  - CONFUSIONAL STATE [None]
  - DRUG ADMINISTRATION ERROR [None]
  - DRUG INTERACTION [None]
  - INFLAMMATION [None]
  - LUNG DISORDER [None]
  - PYREXIA [None]
